FAERS Safety Report 22635434 (Version 3)
Quarter: 2025Q1

REPORT INFORMATION
  Report Type: Report from Study
  Country: US (occurrence: US)
  Receive Date: 20230623
  Receipt Date: 20250127
  Transmission Date: 20250409
  Serious: Yes (Death, Other)
  Sender: PFIZER
  Company Number: US-PFIZER INC-PV202300109712

PATIENT
  Age: 68 Year
  Sex: Male

DRUGS (22)
  1. INLYTA [Suspect]
     Active Substance: AXITINIB
     Dosage: 3 MG TWICE DAILY
     Route: 048
     Dates: start: 20201202
  2. INLYTA [Suspect]
     Active Substance: AXITINIB
     Dosage: 3 MG TWICE DAILY
     Route: 048
     Dates: start: 20210111
  3. INLYTA [Suspect]
     Active Substance: AXITINIB
     Dosage: 3 MG, 2X/DAY
     Route: 048
     Dates: start: 20220204, end: 202305
  4. INLYTA [Suspect]
     Active Substance: AXITINIB
     Dosage: 3 MG, 2X/DAY
     Route: 048
  5. BUDESONIDE [Concomitant]
     Active Substance: BUDESONIDE
  6. CARVEDILOL [Concomitant]
     Active Substance: CARVEDILOL
  7. ELIQUIS [Concomitant]
     Active Substance: APIXABAN
  8. FLUOXETINE [Concomitant]
     Active Substance: FLUOXETINE HYDROCHLORIDE
  9. KEYTRUDA [Concomitant]
     Active Substance: PEMBROLIZUMAB
  10. LEVOTHYROXINE [Concomitant]
     Active Substance: LEVOTHYROXINE
  11. LISINOPRIL [Concomitant]
     Active Substance: LISINOPRIL
  12. OXYCODONE [Concomitant]
     Active Substance: OXYCODONE
  13. IRON [Concomitant]
     Active Substance: IRON
  14. ALLOPURINOL [Concomitant]
     Active Substance: ALLOPURINOL
  15. AMLODIPINE BESYLATE [Concomitant]
     Active Substance: AMLODIPINE BESYLATE
  16. ATORVASTATIN [Concomitant]
     Active Substance: ATORVASTATIN
  17. DULOXETINE [Concomitant]
     Active Substance: DULOXETINE
  18. FISH OIL [Concomitant]
     Active Substance: FISH OIL
  19. OMEPRAZOLE [Concomitant]
     Active Substance: OMEPRAZOLE
  20. PREGABALIN [Concomitant]
     Active Substance: PREGABALIN
  21. TRAZODONE [Concomitant]
     Active Substance: TRAZODONE HYDROCHLORIDE
  22. VITAMIN D NOS [Concomitant]
     Active Substance: CHOLECALCIFEROL\ERGOCALCIFEROL

REACTIONS (3)
  - Sudden death [Fatal]
  - Femur fracture [Recovered/Resolved]
  - Neoplasm progression [Recovered/Resolved]

NARRATIVE: CASE EVENT DATE: 20230101
